FAERS Safety Report 10155468 (Version 1)
Quarter: 2014Q2

REPORT INFORMATION
  Report Type: Spontaneous
  Country: US (occurrence: US)
  Receive Date: 20140506
  Receipt Date: 20140506
  Transmission Date: 20141212
  Serious: No
  Sender: FDA-Public Use
  Company Number: US-JNJFOC-20140405638

PATIENT
  Sex: Male
  Weight: 136.08 kg

DRUGS (3)
  1. INVEGA [Suspect]
     Indication: SCHIZOPHRENIA, PARANOID TYPE
     Route: 048
     Dates: start: 2014, end: 201403
  2. INVEGA [Suspect]
     Indication: SCHIZOPHRENIA, PARANOID TYPE
     Dosage: AT NIGHT
     Route: 048
     Dates: start: 201403
  3. INVEGA [Suspect]
     Indication: SCHIZOPHRENIA, PARANOID TYPE
     Route: 048
     Dates: start: 2014, end: 2014

REACTIONS (3)
  - Eye movement disorder [Not Recovered/Not Resolved]
  - Hallucination, auditory [Recovering/Resolving]
  - Blood glucose increased [Not Recovered/Not Resolved]
